FAERS Safety Report 4286047-7 (Version None)
Quarter: 2004Q1

REPORT INFORMATION
  Report Type: 
  Country: None (occurrence: None)
  Receive Date: 20040205
  Receipt Date: 20020605
  Transmission Date: 20041129
  Serious: Yes (Hospitalization)
  Sender: FDA-Public Use
  Company Number: PHBS2002ES06722

PATIENT
  Age: 46 Year
  Sex: Female

DRUGS (5)
  1. PREDNISONE [Concomitant]
     Dosage: 1 MG/KG/ DAY
  2. SERUM THERAPY [Concomitant]
  3. TRILEPTAL [Suspect]
     Dosage: 600 MG, BID
     Route: 048
  4. TRILEPTAL [Suspect]
     Dosage: 300 MG, BID
     Route: 048
  5. ANGIOTENSIN CONVERTING ENZYME BLOCKERS [Concomitant]
     Indication: ENZYME INHIBITION

REACTIONS (6)
  - HEPATIC FAILURE [None]
  - NAUSEA [None]
  - PYREXIA [None]
  - RASH [None]
  - RENAL FAILURE [None]
  - VOMITING [None]
